FAERS Safety Report 6345239-3 (Version None)
Quarter: 2009Q3

REPORT INFORMATION
  Report Type: 
  Country: None (occurrence: None)
  Receive Date: 20090909
  Receipt Date: 20090901
  Transmission Date: 20100115
  Serious: Yes (Other)
  Sender: FDA-Public Use
  Company Number: PHHY2008AU03793

PATIENT
  Sex: Male

DRUGS (4)
  1. CLOZARIL [Suspect]
     Dosage: 350 MG, QD
     Dates: start: 20010618
  2. CLOZARIL [Suspect]
     Dosage: 700 MG, DAILY
     Route: 048
     Dates: start: 20071001, end: 20080302
  3. CLOZARIL [Suspect]
     Dosage: 400 MG, DAILY
     Route: 048
     Dates: start: 20080303
  4. CLOZARIL [Suspect]
     Dosage: 350 MG, QD

REACTIONS (7)
  - CARDIOMYOPATHY [None]
  - DRUG INEFFECTIVE [None]
  - MENTAL IMPAIRMENT [None]
  - MYOPATHY [None]
  - PSYCHOTIC DISORDER [None]
  - TREATMENT NONCOMPLIANCE [None]
  - VENTRICULAR DYSFUNCTION [None]
